FAERS Safety Report 7744686-2 (Version None)
Quarter: 2011Q3

REPORT INFORMATION
  Report Type: 
  Country: None (occurrence: None)
  Receive Date: 20110912
  Receipt Date: 20110905
  Transmission Date: 20111222
  Serious: Yes (Other)
  Sender: FDA-Public Use
  Company Number: PHHY2011JP51289

PATIENT
  Sex: Male
  Weight: 61 kg

DRUGS (3)
  1. AZUNOL [Concomitant]
     Indication: PROPHYLAXIS
     Dates: start: 20101102
  2. AFINITOR [Suspect]
     Indication: METASTATIC RENAL CELL CARCINOMA
     Dosage: 10 MG, DAILY
     Route: 048
     Dates: start: 20100915, end: 20101026
  3. LEVOTHYROXINE SODIUM [Concomitant]
     Dosage: 50 UG, UNK
     Route: 048
     Dates: start: 20090709

REACTIONS (5)
  - STOMATITIS [None]
  - PNEUMONITIS [None]
  - NEOPLASM MALIGNANT [None]
  - BLOOD LACTATE DEHYDROGENASE INCREASED [None]
  - NEOPLASM PROGRESSION [None]
